FAERS Safety Report 7769124-5 (Version None)
Quarter: 2011Q3

REPORT INFORMATION
  Report Type: 
  Country: None (occurrence: None)
  Receive Date: 20110922
  Receipt Date: 20101201
  Transmission Date: 20111222
  Serious: No
  Sender: FDA-Public Use
  Company Number: US-ASTRAZENECA-2010SE57152

PATIENT
  Age: 58 Year
  Sex: Female
  Weight: 74.8 kg

DRUGS (3)
  1. SEROQUEL [Suspect]
     Indication: HOT FLUSH
     Route: 048
     Dates: start: 20101129, end: 20101130
  2. SYNTHROID [Concomitant]
     Indication: THYROID DISORDER
  3. SEROQUEL [Suspect]
     Indication: INSOMNIA
     Route: 048
     Dates: start: 20101129, end: 20101130

REACTIONS (3)
  - SOMNOLENCE [None]
  - FEELING ABNORMAL [None]
  - INTENTIONAL DRUG MISUSE [None]
